FAERS Safety Report 13270726 (Version 1)
Quarter: 2017Q1

REPORT INFORMATION
  Report Type: Spontaneous
  Country: AU (occurrence: AU)
  Receive Date: 20170225
  Receipt Date: 20170225
  Transmission Date: 20170428
  Serious: Yes (Other)
  Sender: FDA-Public Use
  Company Number: AU-BAXTER-2017BAX007198

PATIENT
  Age: 30 Year
  Sex: Female

DRUGS (2)
  1. 5% GLUCOSE 500MLINTRAVENOUS INFUSION (AH6E0063) [Suspect]
     Active Substance: DEXTROSE
     Indication: MEDICATION DILUTION
     Dosage: AVIVA; INFUSION
     Route: 042
     Dates: start: 20170210
  2. PACLITAXEL. [Suspect]
     Active Substance: PACLITAXEL
     Indication: PRODUCT USED FOR UNKNOWN INDICATION
     Dosage: INFUSION, ANZATAX
     Route: 042
     Dates: start: 20170210

REACTIONS (4)
  - Vital functions abnormal [Unknown]
  - Chest discomfort [Unknown]
  - Erythema [Unknown]
  - Bradycardia [Unknown]

NARRATIVE: CASE EVENT DATE: 20170210
